FAERS Safety Report 5407103-3 (Version None)
Quarter: 2007Q3

REPORT INFORMATION
  Report Type: 
  Country: None (occurrence: None)
  Receive Date: 20070803
  Receipt Date: 20070803
  Transmission Date: 20080115
  Serious: Yes (Hospitalization)
  Sender: FDA-Public Use
  Company Number: None

PATIENT
  Age: 60 Year
  Sex: Male

DRUGS (2)
  1. AMITRIPTYLINE HCL [Suspect]
     Indication: ANGINA PECTORIS
     Dosage: 25MG HS PO
     Route: 048
     Dates: start: 20070423, end: 20070428
  2. TRAMADOL HCL [Suspect]
     Indication: PAIN
     Dosage: 100MG QID PO
     Route: 048
     Dates: start: 20070202, end: 20070428

REACTIONS (1)
  - SYNCOPE [None]
